FAERS Safety Report 11442441 (Version 2)
Quarter: 2015Q3

REPORT INFORMATION
  Report Type: Spontaneous
  Country: CN (occurrence: CN)
  Receive Date: 20150901
  Receipt Date: 20150915
  Transmission Date: 20151125
  Serious: Yes (Other)
  Sender: FDA-Public Use
  Company Number: CN-JNJFOC-20150823978

PATIENT

DRUGS (1)
  1. TOPAMAX [Suspect]
     Active Substance: TOPIRAMATE
     Indication: EPILEPSY
     Dosage: INCREASED BY 0.5 MG/KG/DAY PER WEEK, TARGET DOSE WAS 4.0-9.0 MG/KG/DAY
     Route: 048

REACTIONS (1)
  - Thrombosis [Unknown]
